FAERS Safety Report 5276881-9 (Version None)
Quarter: 2007Q1

REPORT INFORMATION
  Report Type: 
  Country: None (occurrence: None)
  Receive Date: 20070327
  Receipt Date: 20070207
  Transmission Date: 20070707
  Serious: Yes (Hospitalization)
  Sender: FDA-Public Use
  Company Number: JP-AVENTIS-200710386JP

PATIENT
  Age: 66 Year
  Sex: Male

DRUGS (5)
  1. LASIX [Suspect]
     Dates: start: 20030201
  2. DIURETICS [Suspect]
  3. PIRETANIDE [Suspect]
  4. TORSEMIDE [Suspect]
  5. LEVOTHYROXINE SODIUM [Concomitant]
     Indication: HYPOTHYROIDISM

REACTIONS (1)
  - VITAMIN B1 DEFICIENCY [None]
